FAERS Safety Report 12642000 (Version 1)
Quarter: 2016Q3

REPORT INFORMATION
  Report Type: Spontaneous
  Country: FR (occurrence: FR)
  Receive Date: 20160810
  Receipt Date: 20160810
  Transmission Date: 20161109
  Serious: Yes (Hospitalization)
  Sender: FDA-Public Use
  Company Number: FR-FRESENIUS KABI-FK201605256

PATIENT
  Age: 68 Year
  Sex: Female

DRUGS (4)
  1. POLARAMINE [Concomitant]
     Active Substance: DEXCHLORPHENIRAMINE MALEATE
  2. PACLITAXEL 6MG/ML CONCENTRATE FOR SOLUTION FOR INFUSION [Suspect]
     Active Substance: PACLITAXEL
     Indication: ADENOCARCINOMA GASTRIC
     Route: 042
     Dates: start: 20160210, end: 20160210
  3. AZANTAC [Concomitant]
     Active Substance: RANITIDINE HYDROCHLORIDE
  4. ZOPHREN [Concomitant]
     Active Substance: ONDANSETRON

REACTIONS (4)
  - Pain in extremity [Recovered/Resolved]
  - Back pain [Recovered/Resolved]
  - Anxiety [Recovered/Resolved]
  - Hyperventilation [Recovered/Resolved]

NARRATIVE: CASE EVENT DATE: 20160610
